FAERS Safety Report 14823227 (Version 2)
Quarter: 2018Q4

REPORT INFORMATION
  Report Type: Report from Study
  Country: JP (occurrence: JP)
  Receive Date: 20180427
  Receipt Date: 20181128
  Transmission Date: 20190204
  Serious: Yes (Death, Life-Threatening, Other)
  Sender: FDA-Public Use
  Company Number: JP-009507513-1803JPN002125J

PATIENT
  Age: 76 Year
  Sex: Male
  Weight: 54 kg

DRUGS (8)
  1. FAMOTIDINE. [Concomitant]
     Active Substance: FAMOTIDINE
     Indication: PROPHYLAXIS
     Dosage: 5 MILLIGRAM, QD
     Route: 051
     Dates: start: 20180326, end: 20180407
  2. ACELIO [Concomitant]
     Active Substance: ACETAMINOPHEN
     Indication: PYREXIA
     Dosage: 500 MILLIGRAM, BID
     Route: 051
     Dates: start: 20180324, end: 20180407
  3. KEYTRUDA [Suspect]
     Active Substance: PEMBROLIZUMAB
     Indication: TRANSITIONAL CELL CARCINOMA
     Dosage: 200 MG, Q3W
     Route: 041
     Dates: start: 20180314, end: 20180314
  4. VERAPAMIL HYDROCHLORIDE. [Concomitant]
     Active Substance: VERAPAMIL HYDROCHLORIDE
     Indication: TACHYCARDIA
     Dosage: 5 MILLIGRAM, QD
     Route: 051
     Dates: start: 20180319, end: 20180319
  5. CARBAZOCHROME SODIUM SULFONATE [Concomitant]
     Active Substance: CARBAZOCHROME SODIUM SULFONATE
     Indication: HAEMATURIA
     Dosage: 100 MILLIGRAM, QD
     Route: 051
     Dates: start: 20180314, end: 20180326
  6. TRANEXAMIC ACID. [Concomitant]
     Active Substance: TRANEXAMIC ACID
     Indication: HAEMATURIA
     Dosage: 1000 MILLIGRAM, QD.
     Route: 051
     Dates: start: 20180314, end: 20180326
  7. NORADRENALINE [Concomitant]
     Active Substance: NOREPINEPHRINE
     Indication: BLOOD PRESSURE MANAGEMENT
     Dosage: UNK
     Route: 051
     Dates: start: 20180319, end: 20180405
  8. OMEPRAZOLE. [Concomitant]
     Active Substance: OMEPRAZOLE
     Indication: PROPHYLAXIS
     Dosage: 20 MILLIGRAM, BID
     Route: 051
     Dates: start: 20180320, end: 20180325

REACTIONS (6)
  - Thyroxine free decreased [Unknown]
  - Blood thyroid stimulating hormone increased [Unknown]
  - Diarrhoea [Not Recovered/Not Resolved]
  - Tri-iodothyronine free decreased [Unknown]
  - Renal impairment [Unknown]
  - Malignant neoplasm progression [Fatal]

NARRATIVE: CASE EVENT DATE: 201803
